FAERS Safety Report 11353148 (Version 1)
Quarter: 2015Q3

REPORT INFORMATION
  Report Type: Spontaneous
  Country: US (occurrence: US)
  Receive Date: 20150807
  Receipt Date: 20150807
  Transmission Date: 20151125
  Serious: No
  Sender: FDA-Public Use
  Company Number: US-JNJFOC-20150311184

PATIENT
  Age: 59 Year
  Sex: Male
  Weight: 65.32 kg

DRUGS (8)
  1. PENNSAID [Concomitant]
     Active Substance: DICLOFENAC SODIUM
     Indication: BACK PAIN
     Dosage: 8 MONTHS
     Route: 061
     Dates: start: 20140626
  2. OMEPRAZOLE. [Concomitant]
     Active Substance: OMEPRAZOLE
     Indication: GASTROOESOPHAGEAL REFLUX DISEASE
     Dosage: 6 YEARS
     Route: 065
  3. LINZESS [Concomitant]
     Active Substance: LINACLOTIDE
     Indication: CONSTIPATION
     Dosage: 3 YEARS
     Route: 065
  4. MENS ROGAINE EXTRA STRENGTH [Suspect]
     Active Substance: MINOXIDIL
     Indication: HAIR GROWTH ABNORMAL
     Dosage: AROUND A HALF A CAP
     Route: 061
     Dates: start: 201502
  5. OMEPRAZOLE. [Concomitant]
     Active Substance: OMEPRAZOLE
     Indication: GASTRITIS
     Dosage: 6 YEARS
     Route: 065
  6. RESTASIS [Concomitant]
     Active Substance: CYCLOSPORINE
     Indication: DRY EYE
     Dosage: 1 DROP IN EACH EYE, 6 YEARS
     Route: 065
  7. DICLOFENAC SODIUM. [Concomitant]
     Active Substance: DICLOFENAC SODIUM
     Indication: BACK PAIN
     Dosage: 5 MONTHS
     Route: 065
     Dates: start: 20141027
  8. LINZESS [Concomitant]
     Active Substance: LINACLOTIDE
     Indication: IRRITABLE BOWEL SYNDROME
     Dosage: 3 YEARS
     Route: 065

REACTIONS (2)
  - Inappropriate schedule of drug administration [Unknown]
  - Hair texture abnormal [Not Recovered/Not Resolved]
